FAERS Safety Report 12376548 (Version 1)
Quarter: 2016Q2

REPORT INFORMATION
  Report Type: Spontaneous
  Country: US (occurrence: None)
  Receive Date: 20160516
  Receipt Date: 20160516
  Transmission Date: 20160815
  Serious: Yes (Hospitalization)
  Sender: FDA-Public Use
  Company Number: None

PATIENT
  Age: 65 Year
  Sex: Male
  Weight: 76.9 kg

DRUGS (2)
  1. NIVOLUMAB [Suspect]
     Active Substance: NIVOLUMAB
  2. OPDIVO [Concomitant]
     Active Substance: NIVOLUMAB

REACTIONS (7)
  - Blood creatine phosphokinase MB increased [None]
  - Hyperglycaemia [None]
  - Atrial fibrillation [None]
  - Troponin increased [None]
  - Heart rate abnormal [None]
  - Electrocardiogram ST segment abnormal [None]
  - Metabolic acidosis [None]

NARRATIVE: CASE EVENT DATE: 20160509
